FAERS Safety Report 11475649 (Version 3)
Quarter: 2015Q3

REPORT INFORMATION
  Report Type: Spontaneous
  Country: US (occurrence: US)
  Receive Date: 20150909
  Receipt Date: 20150914
  Transmission Date: 20151125
  Serious: No
  Sender: FDA-Public Use
  Company Number: US-009507513-1509USA003741

PATIENT
  Sex: Female

DRUGS (1)
  1. NEXPLANON [Suspect]
     Active Substance: ETONOGESTREL
     Dosage: UNK

REACTIONS (3)
  - Device deployment issue [Not Recovered/Not Resolved]
  - Menstruation irregular [Unknown]
  - No adverse event [Unknown]

NARRATIVE: CASE EVENT DATE: 201409
